FAERS Safety Report 10414164 (Version 2)
Quarter: 2014Q4

REPORT INFORMATION
  Report Type: Spontaneous
  Country: FR (occurrence: None)
  Receive Date: 20140826
  Receipt Date: 20141010
  Transmission Date: 20150528
  Serious: Yes (Other)
  Sender: FDA-Public Use
  Company Number: 7314948

PATIENT
  Age: 63 Year
  Sex: Female

DRUGS (1)
  1. LEVOTHYROX [Suspect]
     Active Substance: LEVOTHYROXINE
     Indication: HYPERTHYROIDISM
     Dosage: 1 DF (1 DF, 1 IN 1 D), 2 DAYS?
     Dates: start: 20120104, end: 20120106

REACTIONS (3)
  - Product substitution issue [None]
  - Product quality issue [None]
  - Toxic skin eruption [None]

NARRATIVE: CASE EVENT DATE: 20120606
